FAERS Safety Report 6117342-4 (Version None)
Quarter: 2009Q1

REPORT INFORMATION
  Report Type: 
  Country: None (occurrence: None)
  Receive Date: 20090314
  Receipt Date: 20090115
  Transmission Date: 20090719
  Serious: Yes (Other)
  Sender: FDA-Public Use
  Company Number: US-ABBOTT-09P-163-0497936-00

PATIENT
  Sex: Female
  Weight: 56.75 kg

DRUGS (2)
  1. HUMIRA [Suspect]
     Indication: PUSTULAR PSORIASIS
     Dosage: 80MG - INITIAL DOSE
     Route: 058
     Dates: start: 20090105
  2. HUMIRA [Suspect]
     Indication: PSORIATIC ARTHROPATHY
     Route: 058

REACTIONS (5)
  - DRY SKIN [None]
  - PAIN [None]
  - PSORIASIS [None]
  - RASH PUSTULAR [None]
  - TOOTH INFECTION [None]
